FAERS Safety Report 10230249 (Version 1)
Quarter: 2014Q2

REPORT INFORMATION
  Report Type: Spontaneous
  Country: US (occurrence: US)
  Receive Date: 20140611
  Receipt Date: 20140611
  Transmission Date: 20141212
  Serious: Yes (Hospitalization, Other)
  Sender: FDA-Public Use
  Company Number: US-BAXTER-2014BAX028958

PATIENT
  Sex: Male

DRUGS (2)
  1. DIANEAL LOW CALCIUM [Suspect]
     Indication: PERITONEAL DIALYSIS
     Route: 033
  2. DIANEAL LOW CALCIUM (ULTRABAG) [Suspect]
     Indication: PERITONEAL DIALYSIS
     Route: 033

REACTIONS (8)
  - Cardiac failure congestive [Recovered/Resolved]
  - Hernia [Recovering/Resolving]
  - Pulmonary oedema [Recovered/Resolved]
  - Malnutrition [Recovering/Resolving]
  - Haemoglobin decreased [Recovering/Resolving]
  - Ultrafiltration failure [Unknown]
  - Hiccups [Recovered/Resolved]
  - Disease complication [Recovered/Resolved]
